FAERS Safety Report 11824314 (Version 1)
Quarter: 2015Q4

REPORT INFORMATION
  Report Type: Spontaneous
  Country: CA (occurrence: CA)
  Receive Date: 20151210
  Receipt Date: 20151210
  Transmission Date: 20160305
  Serious: Yes (Other)
  Sender: FDA-Public Use
  Company Number: CA-BAYER-2015-480971

PATIENT
  Sex: Female

DRUGS (10)
  1. NITROGLYCERINE [Concomitant]
     Active Substance: NITROGLYCERIN
  2. NIFEDIPINE. [Suspect]
     Active Substance: NIFEDIPINE
  3. PHENYLEPHRINE [Concomitant]
     Active Substance: PHENYLEPHRINE\PHENYLEPHRINE HYDROCHLORIDE
  4. NIFEDIPINE. [Suspect]
     Active Substance: NIFEDIPINE
  5. MGSO4 [Concomitant]
     Active Substance: MAGNESIUM SULFATE
  6. NITROGLYCERINE [Concomitant]
     Active Substance: NITROGLYCERIN
  7. MGSO4 [Concomitant]
     Active Substance: MAGNESIUM SULFATE
  8. PHENYLEPHRINE [Concomitant]
     Active Substance: PHENYLEPHRINE\PHENYLEPHRINE HYDROCHLORIDE
  9. BETAMETHASONE. [Concomitant]
     Active Substance: BETAMETHASONE
  10. BETAMETHASONE. [Concomitant]
     Active Substance: BETAMETHASONE

REACTIONS (4)
  - Bradycardia foetal [None]
  - Low birth weight baby [None]
  - Foetal exposure during pregnancy [None]
  - Premature baby [None]
